FAERS Safety Report 7687969-7 (Version None)
Quarter: 2011Q3

REPORT INFORMATION
  Report Type: 
  Country: None (occurrence: None)
  Receive Date: 20110817
  Receipt Date: 20110808
  Transmission Date: 20111222
  Serious: Yes (Other)
  Sender: FDA-Public Use
  Company Number: CN-ASTRAZENECA-2011SE45907

PATIENT
  Age: 50 Year
  Sex: Male
  Weight: 70 kg

DRUGS (8)
  1. FENTANYL [Concomitant]
     Dosage: INTERMITTENT IV INJECTION OF 0.2 MG
     Route: 042
  2. PROPOFOL [Suspect]
     Route: 042
  3. PROPOFOL [Suspect]
     Indication: ANAESTHESIA
     Route: 042
  4. MIDAZOLAM HCL [Concomitant]
     Dosage: 6 MG
     Route: 042
  5. FENTANYL [Concomitant]
     Dosage: 0.1 MG
     Route: 042
  6. VECURONIUM BROMIDE [Concomitant]
     Route: 042
  7. PHENCYCLIDINE HYDROCHLORIDE [Concomitant]
  8. ISOFLURANE [Concomitant]
     Route: 055

REACTIONS (4)
  - ABNORMAL BEHAVIOUR [None]
  - HALLUCINATION [None]
  - DELIRIUM [None]
  - NIGHTMARE [None]
